FAERS Safety Report 7263389-4 (Version None)
Quarter: 2011Q1

REPORT INFORMATION
  Report Type: 
  Country: None (occurrence: None)
  Receive Date: 20110130
  Receipt Date: 20101026
  Transmission Date: 20110831
  Serious: No
  Sender: FDA-Public Use
  Company Number: US-ABBOTT-10P-163-0681752-00

PATIENT
  Age: 19 Year
  Sex: Male

DRUGS (4)
  1. ENTROCORT [Concomitant]
     Dosage: 1 DAILY
     Dates: start: 20101024
  2. ENTROCORT [Concomitant]
     Indication: PRODUCT USED FOR UNKNOWN INDICATION
     Dosage: 2 DAILY
  3. HUMIRA [Suspect]
     Indication: CROHN'S DISEASE
     Dates: start: 20100808
  4. AZULFIDINE [Concomitant]
     Indication: PRODUCT USED FOR UNKNOWN INDICATION

REACTIONS (4)
  - DIARRHOEA [None]
  - FEELING HOT [None]
  - PYREXIA [None]
  - FLUSHING [None]
